FAERS Safety Report 8387771-7 (Version None)
Quarter: 2012Q2

REPORT INFORMATION
  Report Type: 
  Country: None (occurrence: None)
  Receive Date: 20120525
  Receipt Date: 20120517
  Transmission Date: 20120825
  Serious: Yes (Hospitalization)
  Sender: FDA-Public Use
  Company Number: US-GLAXOSMITHKLINE-A0978822A

PATIENT
  Age: 67 Year

DRUGS (1)
  1. FLOLAN [Suspect]
     Indication: PRODUCT USED FOR UNKNOWN INDICATION
     Dosage: 12NGKM CONTINUOUS
     Route: 042
     Dates: start: 20110816

REACTIONS (3)
  - INFUSION SITE PRURITUS [None]
  - DEVICE OCCLUSION [None]
  - INFECTION [None]
